FAERS Safety Report 6645889-0 (Version None)
Quarter: 2010Q1

REPORT INFORMATION
  Report Type: 
  Country: None (occurrence: None)
  Receive Date: 20100323
  Receipt Date: 20100311
  Transmission Date: 20100710
  Serious: Yes (Hospitalization)
  Sender: FDA-Public Use
  Company Number: PHHY2010FR15065

PATIENT
  Age: 86 Year
  Sex: Female

DRUGS (6)
  1. COTAREG [Suspect]
     Indication: HYPERTENSION
     Dosage: 160/12.5 MG ONCE DAILY
     Route: 048
     Dates: end: 20090811
  2. DISCOTRINE [Concomitant]
     Route: 062
  3. ASPEGIC 1000 [Concomitant]
  4. AMLODIPINE [Concomitant]
  5. LEVOTHYROX [Concomitant]
     Dosage: 50 UG, UNK
  6. ALLOPURINOL [Concomitant]

REACTIONS (9)
  - BLOOD PRESSURE ABNORMAL [None]
  - CEREBROVASCULAR ACCIDENT [None]
  - FALL [None]
  - HYPOKALAEMIA [None]
  - HYPOKINESIA [None]
  - HYPONATRAEMIA [None]
  - LOSS OF CONSCIOUSNESS [None]
  - MALAISE [None]
  - VOMITING [None]
